FAERS Safety Report 7745290-2 (Version None)
Quarter: 2011Q3

REPORT INFORMATION
  Report Type: 
  Country: None (occurrence: None)
  Receive Date: 20110907
  Receipt Date: 20110819
  Transmission Date: 20111222
  Serious: Yes (Hospitalization, Other)
  Sender: FDA-Public Use
  Company Number: JPI-P-016718

PATIENT
  Age: 52 Year
  Sex: Female
  Weight: 72.5755 kg

DRUGS (7)
  1. DESVENLAFAXINE [Concomitant]
  2. MODAFINIL [Concomitant]
  3. DEXTROAMPHETAMINE [Concomitant]
  4. XYREM [Suspect]
     Indication: SOMNOLENCE
     Dosage: (2 IN 1 D), ORAL 9 GM (4.5 GM, 2 IN 1 D),ORAL
     Route: 048
     Dates: start: 20030901
  5. XYREM [Suspect]
     Indication: CATAPLEXY
     Dosage: (2 IN 1 D), ORAL 9 GM (4.5 GM, 2 IN 1 D),ORAL
     Route: 048
     Dates: start: 20030901
  6. PANTOPRAZOLE [Concomitant]
  7. CLONAZEPAM [Concomitant]

REACTIONS (3)
  - BREAST CANCER FEMALE [None]
  - UPPER RESPIRATORY TRACT INFECTION [None]
  - PNEUMONIA [None]
